FAERS Safety Report 5392090-7 (Version None)
Quarter: 2007Q3

REPORT INFORMATION
  Report Type: 
  Country: None (occurrence: None)
  Receive Date: 20070718
  Receipt Date: 20070718
  Transmission Date: 20080115
  Serious: No
  Sender: FDA-Public Use
  Company Number: None

PATIENT
  Age: 64 Year
  Sex: Female
  Weight: 53.5244 kg

DRUGS (2)
  1. METRONIDAZOLE 250 MG. MUTUAL PHARM CO. [Suspect]
     Indication: LUNG NEOPLASM
     Dosage: 750 MG. 3 X A DAY PO
     Route: 048
     Dates: start: 20070530, end: 20070610
  2. METRONIDAZOLE 500 MG. PLIVA, INC. [Suspect]
     Indication: CLOSTRIDIAL INFECTION
     Dosage: 500 MG. 3 X A DAY PO
     Route: 048
     Dates: start: 20070713, end: 20070716

REACTIONS (6)
  - CLOSTRIDIAL INFECTION [None]
  - DEPRESSION [None]
  - HEADACHE [None]
  - MOVEMENT DISORDER [None]
  - PAIN [None]
  - PAIN IN EXTREMITY [None]
